FAERS Safety Report 13001550 (Version 1)
Quarter: 2016Q4

REPORT INFORMATION
  Report Type: Spontaneous
  Country: US (occurrence: US)
  Receive Date: 20161205
  Receipt Date: 20161205
  Transmission Date: 20170207
  Serious: No
  Sender: FDA-Public Use
  Company Number: None

PATIENT
  Age: 58 Year
  Sex: Female

DRUGS (1)
  1. SYNTHROID [Suspect]
     Active Substance: LEVOTHYROXINE SODIUM
     Route: 048
     Dates: start: 20161128, end: 20161129

REACTIONS (8)
  - Gastrooesophageal reflux disease [None]
  - Oral discomfort [None]
  - Tongue discomfort [None]
  - Asthenia [None]
  - Nausea [None]
  - Abdominal discomfort [None]
  - Product substitution issue [None]
  - Feeling abnormal [None]

NARRATIVE: CASE EVENT DATE: 20161129
